FAERS Safety Report 8361220-7 (Version None)
Quarter: 2012Q2

REPORT INFORMATION
  Report Type: 
  Country: None (occurrence: None)
  Receive Date: 20120515
  Receipt Date: 20110720
  Transmission Date: 20120825
  Serious: No
  Sender: FDA-Public Use
  Company Number: US-ALEXION-A201101103

PATIENT
  Sex: Female
  Weight: 58.9 kg

DRUGS (8)
  1. SOLIRIS [Suspect]
     Indication: PAROXYSMAL NOCTURNAL HAEMOGLOBINURIA
     Dosage: 600 MG, QW
     Route: 042
     Dates: start: 20100825, end: 20100901
  2. MULTI-VITAMINS [Concomitant]
     Dosage: UNK
  3. THYROID TAB [Concomitant]
     Dosage: UNK
  4. SOLIRIS [Suspect]
     Dosage: 900 MG, Q2W
     Route: 042
     Dates: start: 20100101
  5. PREDNISONE TAB [Concomitant]
     Dosage: UNK
  6. FOLIC ACID [Concomitant]
     Dosage: UNK
  7. SOLIRIS [Suspect]
     Dosage: 1200 MG, Q2W
     Route: 042
  8. IRON [Concomitant]
     Dosage: UNK

REACTIONS (5)
  - HAEMOGLOBIN DECREASED [None]
  - PLATELET COUNT DECREASED [None]
  - WEIGHT INCREASED [None]
  - HAEMOLYSIS [None]
  - MATERNAL EXPOSURE DURING PREGNANCY [None]
